FAERS Safety Report 19061239 (Version 2)
Quarter: 2021Q4

REPORT INFORMATION
  Report Type: Report from Study
  Country: CA (occurrence: CA)
  Receive Date: 20210325
  Receipt Date: 20211122
  Transmission Date: 20220303
  Serious: Yes (Other)
  Sender: FDA-Public Use
  Company Number: CA-JNJFOC-20210214073

PATIENT
  Age: 47 Year
  Sex: Female

DRUGS (1)
  1. REMICADE [Suspect]
     Active Substance: INFLIXIMAB
     Indication: Crohn^s disease
     Dosage: INFUSED ON 22-DEC-2020?PATIENT INFUSED ON 06-OCT-2021 AND 26-OCT-2021
     Route: 042

REACTIONS (2)
  - Haematochezia [Recovering/Resolving]
  - Colon neoplasm [Recovering/Resolving]

NARRATIVE: CASE EVENT DATE: 20210101
